APPROVED DRUG PRODUCT: ORKAMBI
Active Ingredient: IVACAFTOR; LUMACAFTOR
Strength: 125MG/PACKET;100MG/PACKET
Dosage Form/Route: GRANULE;ORAL
Application: N211358 | Product #001
Applicant: VERTEX PHARMACEUTICALS INC
Approved: Aug 7, 2018 | RLD: Yes | RS: No | Type: RX

PATENTS:
Patent 8324242 | Expires: Aug 5, 2027
Patent 7973038 | Expires: Nov 8, 2026
Patent 9931334 | Expires: Dec 28, 2026
Patent 8741933 | Expires: Nov 8, 2026
Patent 8846718 | Expires: Jul 2, 2029
Patent 9150552 | Expires: Dec 4, 2028
Patent 8716338 | Expires: Sep 20, 2030
Patent 9192606 | Expires: Sep 29, 2029
Patent 12458635 | Expires: Aug 13, 2029
Patent 11564916 | Expires: Aug 13, 2029
Patent 10597384 | Expires: Dec 4, 2028
Patent 12065432 | Expires: Dec 4, 2028
Patent 9670163 | Expires: Dec 28, 2026
Patent 8653103 | Expires: Dec 4, 2028
Patent 7495103 | Expires: May 20, 2027
Patent 9216969 | Expires: Nov 8, 2026
Patent 8507534 | Expires: Sep 20, 2030
Patent 10646481 | Expires: Aug 13, 2029
Patent 8410274 | Expires: Dec 28, 2026
Patent 8754224 | Expires: Dec 28, 2026
Patent 8993600 | Expires: Dec 11, 2030
Patent 8410274*PED | Expires: Jun 28, 2027
Patent 8716338*PED | Expires: Mar 20, 2031
Patent 7973038*PED | Expires: May 8, 2027
Patent 8324242*PED | Expires: Feb 5, 2028
Patent 7495103*PED | Expires: Nov 20, 2027
Patent 8507534*PED | Expires: Mar 20, 2031
Patent 8653103*PED | Expires: Jun 4, 2029
Patent 8741933*PED | Expires: May 8, 2027
Patent 9150552*PED | Expires: Jun 4, 2029
Patent 8754224*PED | Expires: Jun 28, 2027
Patent 8993600*PED | Expires: Jun 11, 2031
Patent 8846718*PED | Expires: Jan 2, 2030
Patent 9931334*PED | Expires: Jun 28, 2027
Patent 9670163*PED | Expires: Jun 28, 2027
Patent 9216969*PED | Expires: May 8, 2027
Patent 9192606*PED | Expires: Mar 29, 2030
Patent 12065432*PED | Expires: Jun 4, 2029
Patent 10597384*PED | Expires: Jun 4, 2029
Patent 10646481*PED | Expires: Feb 13, 2030
Patent 12458635*PED | Expires: Feb 13, 2030
Patent 11564916*PED | Expires: Feb 13, 2030

EXCLUSIVITY:
Code: M-14 | Date: Dec 13, 2027
Code: ODE-408 | Date: Sep 2, 2029
Code: PED | Date: Mar 2, 2030
Code: PED | Date: Jun 13, 2028